FAERS Safety Report 6529986-6 (Version None)
Quarter: 2010Q1

REPORT INFORMATION
  Report Type: 
  Country: None (occurrence: None)
  Receive Date: 20100107
  Receipt Date: 20091228
  Transmission Date: 20100710
  Serious: Yes (Hospitalization)
  Sender: FDA-Public Use
  Company Number: JP-PFIZER INC-2009298450

PATIENT
  Age: 83 Year
  Sex: Male
  Weight: 48 kg

DRUGS (5)
  1. ZITHROMAC SR [Suspect]
     Indication: UPPER RESPIRATORY TRACT INFECTION
     Dosage: 2 G, SINGLE, DAILY
     Route: 048
     Dates: start: 20090527, end: 20090527
  2. ZITHROMAC SR [Suspect]
     Indication: NASOPHARYNGITIS
  3. NORVASC [Concomitant]
     Dosage: UNK
     Route: 048
  4. FLIVAS [Concomitant]
     Dosage: UNK
     Route: 048
  5. MEVALOTIN [Concomitant]
     Dosage: UNK
     Route: 048

REACTIONS (1)
  - ANTI-NEUTROPHIL CYTOPLASMIC ANTIBODY POSITIVE VASCULITIS [None]
